FAERS Safety Report 6378369-0 (Version None)
Quarter: 2009Q3

REPORT INFORMATION
  Report Type: 
  Country: None (occurrence: None)
  Receive Date: 20090925
  Receipt Date: 20090707
  Transmission Date: 20100115
  Serious: Yes (Other)
  Sender: FDA-Public Use
  Company Number: US-ASTRAZENECA-2009UW12475

PATIENT
  Age: 40 Year
  Sex: Female
  Weight: 79.8 kg

DRUGS (6)
  1. SEROQUEL [Suspect]
     Indication: DEPRESSION
     Dosage: 100 MG TO 300 MG
     Route: 048
     Dates: start: 19970101, end: 20071201
  2. SEROQUEL [Suspect]
     Indication: BIPOLAR DISORDER
     Dosage: 100 MG TO 300 MG
     Route: 048
     Dates: start: 19970101, end: 20071201
  3. SEROQUEL [Suspect]
     Indication: INSOMNIA
     Dosage: 100 MG TO 300 MG
     Route: 048
     Dates: start: 19970101, end: 20071201
  4. SEROQUEL [Suspect]
     Indication: SCHIZOPHRENIA
     Dosage: 100 MG TO 300 MG
     Route: 048
     Dates: start: 19970101, end: 20071201
  5. RISPERDAL [Concomitant]
     Dosage: 4 MG TO 10 MG
     Dates: start: 20000101
  6. ZYPREXA [Concomitant]
     Dates: start: 20000101, end: 20071201

REACTIONS (2)
  - DIABETIC COMA [None]
  - TYPE 2 DIABETES MELLITUS [None]
